FAERS Safety Report 18684369 (Version 1)
Quarter: 2020Q4

REPORT INFORMATION
  Report Type: Spontaneous
  Country: US (occurrence: US)
  Receive Date: 20201230
  Receipt Date: 20201230
  Transmission Date: 20210114
  Serious: No
  Sender: FDA-Public Use
  Company Number: US-ASTRAZENECA-2020SF61565

PATIENT
  Sex: Female

DRUGS (2)
  1. BUDESONIDE AND FORMOTEROL AEROSOL [Suspect]
     Active Substance: BUDESONIDE\FORMOTEROL FUMARATE DIHYDRATE
     Dosage: 160/4.5MCG,UNKNOWN UNKNOWN
     Route: 055
  2. SYMBICORT [Suspect]
     Active Substance: BUDESONIDE\FORMOTEROL FUMARATE DIHYDRATE
     Dosage: 80/4.5MCG,UNKNOWN UNKNOWN
     Route: 055

REACTIONS (6)
  - Device issue [Unknown]
  - Intentional device misuse [Unknown]
  - Device malfunction [Unknown]
  - Cough [Unknown]
  - Drug ineffective [Unknown]
  - General physical health deterioration [Unknown]
